FAERS Safety Report 8270345-6 (Version None)
Quarter: 2012Q2

REPORT INFORMATION
  Report Type: 
  Country: None (occurrence: None)
  Receive Date: 20120410
  Receipt Date: 20120330
  Transmission Date: 20120825
  Serious: Yes (Other)
  Sender: FDA-Public Use
  Company Number: DE-SANOFI-AVENTIS-2012SA009122

PATIENT
  Age: 34 Year
  Sex: Female
  Weight: 71 kg

DRUGS (7)
  1. PREDNISOLONE [Suspect]
     Indication: RHEUMATOID ARTHRITIS
     Route: 048
  2. PREDNISONE TAB [Suspect]
     Indication: RHEUMATOID ARTHRITIS
     Route: 048
     Dates: start: 20120101
  3. OMEPRAZOLE [Suspect]
     Route: 048
  4. MORPHINE SULFATE [Suspect]
     Route: 065
  5. ARAVA [Suspect]
     Indication: RHEUMATOID ARTHRITIS
     Route: 048
     Dates: start: 20110201, end: 20110501
  6. IBUPROFEN [Suspect]
     Indication: RHEUMATOID ARTHRITIS
     Route: 048
  7. MONOCLONAL ANTIBODIES [Suspect]
     Indication: RHEUMATOID ARTHRITIS
     Route: 058
     Dates: start: 20110901, end: 20120201

REACTIONS (3)
  - SMALL FOR DATES BABY [None]
  - ABORTION SPONTANEOUS [None]
  - MATERNAL EXPOSURE DURING PREGNANCY [None]
